FAERS Safety Report 4767208-7 (Version None)
Quarter: 2005Q3

REPORT INFORMATION
  Report Type: 
  Country: None (occurrence: None)
  Receive Date: 20050913
  Receipt Date: 19920930
  Transmission Date: 20060218
  Serious: Yes (Hospitalization)
  Sender: FDA-Public Use
  Company Number: S9207191

PATIENT
  Age: 46 Year
  Sex: Male

DRUGS (2)
  1. SULPIRIDE [Suspect]
     Dosage: 150 MG, QD
     Route: 065
     Dates: start: 19860601, end: 19880822
  2. LUDIOMIL [Suspect]
     Route: 048
     Dates: start: 19880501, end: 19880822

REACTIONS (9)
  - AKINESIA [None]
  - AZOTAEMIA [None]
  - DISSEMINATED INTRAVASCULAR COAGULATION [None]
  - HYPERTHERMIA [None]
  - MUSCLE RIGIDITY [None]
  - MUSCULAR WEAKNESS [None]
  - MYOGLOBINURIA [None]
  - NEUROLEPTIC MALIGNANT SYNDROME [None]
  - OLIGURIA [None]
